FAERS Safety Report 5016685-5 (Version None)
Quarter: 2006Q2

REPORT INFORMATION
  Report Type: 
  Country: None (occurrence: None)
  Receive Date: 20060414
  Receipt Date: 20060126
  Transmission Date: 20061013
  Serious: No
  Sender: FDA-Public Use
  Company Number: 2006SP000463

PATIENT
  Age: 48 Year
  Sex: Male
  Weight: 60.3284 kg

DRUGS (5)
  1. LUNESTA [Suspect]
     Indication: INSOMNIA
     Dosage: 3 MG;HS;ORAL
     Route: 048
     Dates: start: 20060123, end: 20060125
  2. OXYCODONE HCL [Concomitant]
  3. DIAZEPAM [Concomitant]
  4. METOCLOPRAMIDE [Concomitant]
  5. MULTIVITAMIN [Concomitant]

REACTIONS (3)
  - DEPERSONALISATION [None]
  - DEPRESSION [None]
  - NIGHTMARE [None]
